FAERS Safety Report 6004781-5 (Version None)
Quarter: 2008Q4

REPORT INFORMATION
  Report Type: 
  Country: None (occurrence: None)
  Receive Date: 20081216
  Receipt Date: 20081205
  Transmission Date: 20090506
  Serious: Yes (Hospitalization)
  Sender: FDA-Public Use
  Company Number: CY-ELI_LILLY_AND_COMPANY-CY200812001741

PATIENT
  Age: 13 Year
  Sex: Male

DRUGS (3)
  1. ZYPREXA [Suspect]
     Indication: SCHIZOPHRENIA
     Dosage: 10 MG, DAILY (1/D)
     Route: 048
     Dates: start: 20080901
  2. HALOPERIDOL [Concomitant]
     Dosage: 20 D/F, UNK
     Dates: start: 20080901
  3. AKINETON [Concomitant]
     Indication: SCHIZOPHRENIA
     Dosage: 4 MG, UNK
     Route: 048
     Dates: start: 20080901

REACTIONS (2)
  - ABDOMINAL PAIN [None]
  - WHITE BLOOD CELL COUNT DECREASED [None]
